FAERS Safety Report 14088878 (Version 2)
Quarter: 2018Q1

REPORT INFORMATION
  Report Type: Spontaneous
  Country: IT (occurrence: IT)
  Receive Date: 20171014
  Receipt Date: 20180123
  Transmission Date: 20180508
  Serious: Yes (Other)
  Sender: FDA-Public Use
  Company Number: IT-AUROBINDO-AUR-APL-2017-42042

PATIENT
  Age: 37 Year
  Sex: Female

DRUGS (1)
  1. LEVOFLOXACIN FILMCOATED TABLET [Suspect]
     Active Substance: LEVOFLOXACIN
     Indication: SINUSITIS
     Dosage: UNK, DAILY
     Route: 048
     Dates: start: 20170928, end: 20170929

REACTIONS (4)
  - Tachycardia [Recovering/Resolving]
  - Acquired macroglossia [Recovering/Resolving]
  - Hypersensitivity [Recovering/Resolving]
  - Paraesthesia [Recovering/Resolving]

NARRATIVE: CASE EVENT DATE: 20170929
